FAERS Safety Report 9674620 (Version 1)
Quarter: 2013Q4

REPORT INFORMATION
  Report Type: Spontaneous
  Country: US (occurrence: None)
  Receive Date: 20131106
  Receipt Date: 20131106
  Transmission Date: 20140711
  Serious: Yes (Other)
  Sender: FDA-Public Use
  Company Number: None

PATIENT
  Age: 44 Year
  Sex: Female
  Weight: 57.61 kg

DRUGS (1)
  1. LEVOFLOXACIN [Suspect]
     Indication: STAPHYLOCOCCAL INFECTION
     Dosage: 1  ONCE DAILY  TAKEN BY MOUTH
     Route: 048
     Dates: start: 20131019, end: 20131113

REACTIONS (6)
  - Musculoskeletal stiffness [None]
  - Nausea [None]
  - Migraine [None]
  - Bone pain [None]
  - Insomnia [None]
  - Burning sensation [None]
